FAERS Safety Report 20428243 (Version 3)
Quarter: 2022Q1

REPORT INFORMATION
  Report Type: Report from Study
  Country: US (occurrence: US)
  Receive Date: 20220204
  Receipt Date: 20220330
  Transmission Date: 20220423
  Serious: Yes (Hospitalization, Other)
  Sender: FDA-Public Use
  Company Number: US-GILEAD-2022-0568253

PATIENT
  Age: 59 Year
  Sex: Female

DRUGS (5)
  1. AMBRISENTAN [Suspect]
     Active Substance: AMBRISENTAN
     Indication: Pulmonary arterial hypertension
     Dosage: 10 MG, QD
     Route: 065
     Dates: start: 20210517
  2. AMBRISENTAN [Suspect]
     Active Substance: AMBRISENTAN
     Dosage: 5 UNK
     Route: 065
     Dates: start: 20210517
  3. SILDENAFIL [Concomitant]
     Active Substance: SILDENAFIL
  4. NIFEDIPINE [Concomitant]
     Active Substance: NIFEDIPINE
  5. REVATIO [Concomitant]
     Active Substance: SILDENAFIL CITRATE

REACTIONS (2)
  - Cardiac operation [Unknown]
  - Aortic valve replacement [Unknown]

NARRATIVE: CASE EVENT DATE: 20220127
